FAERS Safety Report 6713436-0 (Version None)
Quarter: 2010Q2

REPORT INFORMATION
  Report Type: 
  Country: None (occurrence: None)
  Receive Date: 20100506
  Receipt Date: 20100430
  Transmission Date: 20101027
  Serious: Yes (Death, Hospitalization)
  Sender: FDA-Public Use
  Company Number: US-ROCHE-701217

PATIENT
  Sex: Female
  Weight: 77.1 kg

DRUGS (15)
  1. BEVACIZUMAB [Suspect]
     Dosage: DAILY DOSE: 15 MG/ KG.
     Route: 042
     Dates: start: 20091120
  2. PEMETREXED [Suspect]
     Dosage: DOSE: 500 MG/M2.
     Route: 042
     Dates: start: 20091120
  3. CARBOPLATIN [Suspect]
     Route: 042
     Dates: start: 20091120
  4. FOLIC ACID [Concomitant]
     Dates: start: 20091111
  5. DEXAMETHASONE 4MG TAB [Concomitant]
  6. EFFEXOR [Concomitant]
  7. FERROUS GLUCONATE [Concomitant]
  8. LORAZEPAM [Concomitant]
  9. MEDROXIPROGESTERONE ACETATE [Concomitant]
  10. NORCO [Concomitant]
     Dates: start: 20091111
  11. OXYCONTIN [Concomitant]
     Dates: start: 20091116
  12. REGLAN [Concomitant]
     Dates: start: 20091118
  13. SYMBICORT [Concomitant]
  14. ASPIRIN [Concomitant]
  15. VITAMIN B-12 [Concomitant]
     Dates: start: 20091111

REACTIONS (3)
  - BRONCHIAL FISTULA [None]
  - EMPYEMA [None]
  - RESPIRATORY FAILURE [None]
